FAERS Safety Report 5636499-2 (Version None)
Quarter: 2008Q1

REPORT INFORMATION
  Report Type: 
  Country: None (occurrence: None)
  Receive Date: 20080225
  Receipt Date: 20080222
  Transmission Date: 20080703
  Serious: Yes (Hospitalization)
  Sender: FDA-Public Use
  Company Number: HQWYE210127SEP06

PATIENT
  Sex: Male
  Weight: 97 kg

DRUGS (3)
  1. SIROLIMUS [Suspect]
     Indication: PROPHYLAXIS AGAINST TRANSPLANT REJECTION
     Route: 048
     Dates: start: 20050929, end: 20070329
  2. SIROLIMUS [Suspect]
     Route: 048
     Dates: start: 20070330, end: 20071023
  3. AZATHIOPRINE [Concomitant]
     Indication: IMMUNOSUPPRESSANT DRUG THERAPY
     Route: 048
     Dates: start: 20041112

REACTIONS (1)
  - HEPATIC STEATOSIS [None]
